FAERS Safety Report 4691108-4 (Version None)
Quarter: 2005Q2

REPORT INFORMATION
  Report Type: 
  Country: None (occurrence: None)
  Receive Date: 20050610
  Receipt Date: 20050531
  Transmission Date: 20051028
  Serious: Yes (Hospitalization)
  Sender: FDA-Public Use
  Company Number: 2005044729

PATIENT
  Age: 42 Year
  Sex: Female

DRUGS (12)
  1. ZITHROMAX [Suspect]
     Indication: BRONCHITIS
     Dosage: 500 MG , ORAL
     Route: 048
     Dates: start: 20050304, end: 20050305
  2. PL GRAN. (CAFFEINE, PARACETAMOL, PROMETHAZINE METHYLENE  DISALICYLATE, [Concomitant]
  3. DASEN                (SERRAPEPTASE) [Concomitant]
  4. MARZULENE S            (LEVOGLUTAMIDE, SODIUM GUALENATE) [Concomitant]
  5. ALL OTHER THERAPEUTIC PRODUCTS [Concomitant]
  6. PL     (PYRIDOXAL) [Concomitant]
  7. FLAVERIC           (BENPROPERINE PHOSPHATE) [Concomitant]
  8. LOXONIN (LOXOPROFEN SODIUM) [Concomitant]
  9. CEFZON (CEFDINIR) [Concomitant]
  10. MEIACT (CEFDITOREN PIVOXIL) [Concomitant]
  11. ROXATIDINE ACETATE HCL [Concomitant]
  12. PREDNISOLONE [Concomitant]

REACTIONS (5)
  - EYE PAIN [None]
  - MUSCULAR WEAKNESS [None]
  - PARALYSIS [None]
  - THYROIDITIS [None]
  - TREMOR [None]
